FAERS Safety Report 10459765 (Version 2)
Quarter: 2014Q4

REPORT INFORMATION
  Report Type: Spontaneous
  Country: LT (occurrence: LT)
  Receive Date: 20140917
  Receipt Date: 20141022
  Transmission Date: 20150528
  Serious: Yes (Hospitalization, Other)
  Sender: FDA-Public Use
  Company Number: LT-GLAXOSMITHKLINE-B1024458A

PATIENT
  Age: 59 Year
  Sex: Male

DRUGS (5)
  1. DEXAMETHASONE. [Concomitant]
     Active Substance: DEXAMETHASONE
     Route: 042
  2. VOTRIENT [Suspect]
     Active Substance: PAZOPANIB HYDROCHLORIDE
     Indication: METASTASES TO KIDNEY
     Dosage: UNK
     Route: 065
     Dates: start: 20121022, end: 201402
  3. FUROSEMID [Concomitant]
     Active Substance: FUROSEMIDE
     Route: 042
  4. CEFTRIAXONE. [Concomitant]
     Active Substance: CEFTRIAXONE
     Route: 042
  5. VOTRIENT [Suspect]
     Active Substance: PAZOPANIB HYDROCHLORIDE
     Dosage: UNK
     Dates: start: 201405, end: 201406

REACTIONS (19)
  - Hyperparathyroidism secondary [Unknown]
  - Nausea [Unknown]
  - Orthopnoea [Unknown]
  - Chronic kidney disease [Unknown]
  - Productive cough [Unknown]
  - Tubulointerstitial nephritis [Unknown]
  - Renal failure [Unknown]
  - Pulmonary oedema [Unknown]
  - Hypertension [Unknown]
  - Pyrexia [Unknown]
  - Anaemia [Unknown]
  - Urine output decreased [Recovering/Resolving]
  - Chest pain [Unknown]
  - Secondary hypertension [Unknown]
  - Dyspnoea [Recovering/Resolving]
  - Left ventricular hypertrophy [Unknown]
  - Hepatitis toxic [Recovered/Resolved]
  - Drug ineffective [Unknown]
  - Oedema peripheral [Unknown]

NARRATIVE: CASE EVENT DATE: 20140627
